FAERS Safety Report 5826174-3 (Version None)
Quarter: 2008Q3

REPORT INFORMATION
  Report Type: 
  Country: None (occurrence: None)
  Receive Date: 20080723
  Receipt Date: 20080711
  Transmission Date: 20090109
  Serious: Yes (Hospitalization, Other)
  Sender: FDA-Public Use
  Company Number: 2007JP005798

PATIENT
  Age: 26 Year
  Sex: Female
  Weight: 42 kg

DRUGS (15)
  1. PROGRAF [Suspect]
     Indication: SMALL INTESTINE TRANSPLANT
     Dosage: 4 G, BID, ORAL
     Route: 048
     Dates: start: 20070213
  2. ZENAPAX (DACLIZUMAB) INJECTION [Suspect]
     Dosage: 100 MG, /D, IV DRIP
     Route: 041
     Dates: start: 20070215, end: 20080301
  3. ANTI-IL-2 RECEPTOR ANTIBODY [Concomitant]
  4. MEDROL [Suspect]
  5. ROHYPNOL (FLUNITRAZEPAM) GRANULE [Concomitant]
  6. MARZULENE'S (LEVOGLUTAMIDE, SODIUM GULAENATE) GRANULE [Concomitant]
  7. TAKEPRON (LANSOPRAZOLE) ORODISPERSILBE CR TABLET [Concomitant]
  8. RITUXAN (RITUXIMAB) FORMULATION UNKNOWN [Concomitant]
  9. LOPEMIN (LOPERAMIDE HYDROCHLORIDE) FINE GRANULE [Concomitant]
  10. LAC B (LACTOBACILLUS BIFIDUS, LYOPHILIZED) GRANULE [Concomitant]
  11. ENTERONON (LACTOBACILLUS ACIDOPHILUS) GRANULE [Concomitant]
  12. SULFAMETHOXAZOLE AND TRIMETHOPRIM [Concomitant]
  13. GASTER D ORODISPERSIBLE CR TABLET [Concomitant]
  14. GASMOTIN (MOSAPRIDE CITRATE) POWDER [Concomitant]
  15. DIOVAN (VALSARTAN) POWDER [Concomitant]

REACTIONS (9)
  - ALKALOSIS [None]
  - CATHETER SEPSIS [None]
  - DEHYDRATION [None]
  - HYPERCHLORAEMIA [None]
  - HYPERKALAEMIA [None]
  - METABOLIC ACIDOSIS [None]
  - RENAL IMPAIRMENT [None]
  - SMALL INTESTINAL STENOSIS [None]
  - TRANSPLANT REJECTION [None]
